FAERS Safety Report 13795261 (Version 1)
Quarter: 2017Q3

REPORT INFORMATION
  Report Type: Not Available
  Country: US (occurrence: US)
  Receive Date: 20170726
  Receipt Date: 20170726
  Transmission Date: 20171127
  Serious: No
  Sender: FDA-Public Use
  Company Number: US-NEUROCRINE BIOSCIENCES INC.-2017NBI00442

PATIENT
  Age: 84 Year
  Sex: Female

DRUGS (11)
  1. RALOXIFENE. [Concomitant]
     Active Substance: RALOXIFENE
  2. VRAYLAR [Concomitant]
     Active Substance: CARIPRAZINE
  3. INGREZZA [Suspect]
     Active Substance: VALBENAZINE
     Indication: PRODUCT USED FOR UNKNOWN INDICATION
     Route: 048
     Dates: start: 201706
  4. LEVOTHYRXONE [Concomitant]
  5. CITRACAL [Concomitant]
     Active Substance: CALCIUM CITRATE
  6. IPRATROPIUM [Concomitant]
     Active Substance: IPRATROPIUM
  7. LOSARTAN. [Concomitant]
     Active Substance: LOSARTAN
  8. FOSAMAX [Concomitant]
     Active Substance: ALENDRONATE SODIUM
  9. MIRTAZAPINE. [Concomitant]
     Active Substance: MIRTAZAPINE
  10. MONTELUKAST [Concomitant]
     Active Substance: MONTELUKAST SODIUM
  11. ZETIA [Concomitant]
     Active Substance: EZETIMIBE

REACTIONS (4)
  - Anxiety [Not Recovered/Not Resolved]
  - Restlessness [Not Recovered/Not Resolved]
  - Muscle spasms [Not Recovered/Not Resolved]
  - Tremor [Not Recovered/Not Resolved]

NARRATIVE: CASE EVENT DATE: 20170608
